FAERS Safety Report 9513210 (Version 1)
Quarter: 2013Q3

REPORT INFORMATION
  Report Type: Spontaneous
  Country: US (occurrence: US)
  Receive Date: 20130910
  Receipt Date: 20130910
  Transmission Date: 20140515
  Serious: No
  Sender: FDA-Public Use
  Company Number: US-PFIZER INC-2013258621

PATIENT
  Age: 59 Year
  Sex: Female

DRUGS (1)
  1. CELEBREX [Suspect]
     Dosage: 200 MG, 1X/DAY
     Dates: start: 2013

REACTIONS (7)
  - Alopecia [Unknown]
  - Arthritis [Unknown]
  - Fibromyalgia [Unknown]
  - Arthropathy [Unknown]
  - Pain [Unknown]
  - Injury [Unknown]
  - Drug ineffective [Unknown]
